FAERS Safety Report 5109481-1 (Version None)
Quarter: 2006Q3

REPORT INFORMATION
  Report Type: 
  Country: None (occurrence: None)
  Receive Date: 20060918
  Receipt Date: 20060907
  Transmission Date: 20061208
  Serious: Yes (Other)
  Sender: FDA-Public Use
  Company Number: 2006099029

PATIENT
  Age: 33 Year
  Sex: Female
  Weight: 91 kg

DRUGS (1)
  1. DEPO-PROVERA [Suspect]
     Indication: DRUG USE FOR UNKNOWN INDICATION
     Dosage: INTRAMUSCULAR
     Route: 030

REACTIONS (1)
  - DIABETES MELLITUS NON-INSULIN-DEPENDENT [None]
